FAERS Safety Report 6176870-6 (Version None)
Quarter: 2009Q2

REPORT INFORMATION
  Report Type: 
  Country: None (occurrence: None)
  Receive Date: 20090501
  Receipt Date: 20081124
  Transmission Date: 20091009
  Serious: Yes (Hospitalization, Other)
  Sender: FDA-Public Use
  Company Number: US-ALEXION-A200800330

PATIENT

DRUGS (2)
  1. SOLIRIS [Suspect]
     Indication: PAROXYSMAL NOCTURNAL HAEMOGLOBINURIA
  2. MAXALT /01406501/ [Concomitant]
     Indication: MIGRAINE
     Dosage: UNK, PRN

REACTIONS (5)
  - ARTHRALGIA [None]
  - BACTERAEMIA [None]
  - HAEMOGLOBIN DECREASED [None]
  - MYALGIA [None]
  - URINARY TRACT INFECTION [None]
